FAERS Safety Report 6681963-0 (Version None)
Quarter: 2010Q1

REPORT INFORMATION
  Report Type: 
  Country: None (occurrence: None)
  Receive Date: 20100331
  Receipt Date: 20100322
  Transmission Date: 20100710
  Serious: Yes (Other)
  Sender: FDA-Public Use
  Company Number: 201002289

PATIENT
  Sex: Male

DRUGS (1)
  1. VIVAGLOBIN [Suspect]
     Indication: IMMUNODEFICIENCY COMMON VARIABLE
     Dosage: SUBCUTANEOUS
     Route: 058

REACTIONS (3)
  - FALSE POSITIVE LABORATORY RESULT [None]
  - HEPATITIS B SURFACE ANTIGEN POSITIVE [None]
  - TRANSMISSION OF AN INFECTIOUS AGENT VIA A MEDICINAL PRODUCT [None]
